FAERS Safety Report 9148956 (Version 1)
Quarter: 2013Q1

REPORT INFORMATION
  Report Type: Spontaneous
  Country: US (occurrence: US)
  Receive Date: 20130308
  Receipt Date: 20130308
  Transmission Date: 20140127
  Serious: Yes (Other)
  Sender: FDA-Public Use
  Company Number: US-JNJFOC-20130214961

PATIENT
  Sex: Female

DRUGS (13)
  1. LEVAQUIN [Suspect]
     Indication: PRODUCT USED FOR UNKNOWN INDICATION
     Route: 065
  2. BABY ASPIRIN [Concomitant]
     Route: 065
  3. BENTYL [Concomitant]
     Route: 065
  4. COMBIVENT [Concomitant]
     Route: 065
  5. ISOSORBIDE [Concomitant]
     Route: 065
  6. PREMARIN [Concomitant]
     Dosage: 0.625 (UNITS UNSPECIFIED)
     Route: 048
  7. LASIX [Concomitant]
     Route: 065
  8. PRAVACHOL [Concomitant]
     Route: 065
  9. OMEPRAZOLE [Concomitant]
     Route: 065
  10. LYRICA [Concomitant]
     Route: 065
  11. SYNTHROID [Concomitant]
     Route: 065
  12. TAMBOCOR [Concomitant]
     Route: 065
  13. SPIRIVA HANDIHALER [Concomitant]
     Route: 065

REACTIONS (3)
  - Loss of consciousness [Unknown]
  - Swollen tongue [Unknown]
  - Unresponsive to stimuli [Unknown]
